FAERS Safety Report 4616410-3 (Version None)
Quarter: 2005Q1

REPORT INFORMATION
  Report Type: 
  Country: None (occurrence: None)
  Receive Date: 20050321
  Receipt Date: 20050308
  Transmission Date: 20050727
  Serious: Yes (Other)
  Sender: FDA-Public Use
  Company Number: 2005042711

PATIENT
  Age: 68 Year
  Sex: Female
  Weight: 56.6996 kg

DRUGS (2)
  1. GABAPENTIN [Suspect]
     Indication: FIBROMYALGIA
     Dosage: 200 MG (100 MG, 2 IN 1 D), ORAL
     Route: 048
     Dates: start: 20040101, end: 20040101
  2. VICODINE (HYDROCHLORIDE BITARTRATE, PARACETAMOL) [Concomitant]

REACTIONS (3)
  - CHOKING SENSATION [None]
  - NEUROPATHY PERIPHERAL [None]
  - THROAT IRRITATION [None]
